FAERS Safety Report 7632878-2 (Version None)
Quarter: 2011Q3

REPORT INFORMATION
  Report Type: 
  Country: None (occurrence: None)
  Receive Date: 20110725
  Receipt Date: 20110712
  Transmission Date: 20111222
  Serious: Yes (Other)
  Sender: FDA-Public Use
  Company Number: PHHY2011US61794

PATIENT

DRUGS (1)
  1. SANDOSTATIN LAR [Suspect]

REACTIONS (4)
  - LOCAL SWELLING [None]
  - HYPERSENSITIVITY [None]
  - JOINT SWELLING [None]
  - OEDEMA PERIPHERAL [None]
